FAERS Safety Report 8310226-2 (Version None)
Quarter: 2012Q2

REPORT INFORMATION
  Report Type: 
  Country: None (occurrence: None)
  Receive Date: 20120425
  Receipt Date: 20120416
  Transmission Date: 20120825
  Serious: Yes (Other)
  Sender: FDA-Public Use
  Company Number: GB-BRISTOL-MYERS SQUIBB COMPANY-16440935

PATIENT
  Age: 75 Year
  Sex: Male

DRUGS (14)
  1. ATORVASTATIN [Suspect]
     Route: 065
  2. WARFARIN SODIUM [Suspect]
     Indication: ATRIAL FIBRILLATION
     Route: 065
  3. FUROSEMIDE [Suspect]
     Route: 065
  4. RAMIPRIL [Suspect]
     Route: 065
  5. FORMOTEROL FUMARATE [Suspect]
  6. ALBUTEROL [Suspect]
     Route: 065
  7. CARBOCISTEINE [Concomitant]
  8. SPIRIVA [Concomitant]
  9. METFORMIN HCL [Suspect]
     Route: 048
  10. VERAPAMIL [Suspect]
     Indication: ATRIAL FIBRILLATION
     Route: 065
  11. PREDNISOLONE [Suspect]
     Indication: CHRONIC OBSTRUCTIVE PULMONARY DISEASE
     Route: 065
  12. SYMBICORT [Concomitant]
  13. CYSTEINE HYDROCHLORIDE [Suspect]
     Route: 065
  14. FORMOTEROL FUMARATE [Suspect]
     Route: 055

REACTIONS (1)
  - HALLUCINATION [None]
